FAERS Safety Report 9011540 (Version 1)
Quarter: 2013Q1

REPORT INFORMATION
  Report Type: Spontaneous
  Country: US (occurrence: US)
  Receive Date: 20130108
  Receipt Date: 20130108
  Transmission Date: 20140127
  Serious: Yes (Other)
  Sender: FDA-Public Use
  Company Number: US-JNJFOC-20121206403

PATIENT
  Age: 80 Year
  Sex: Male
  Weight: 79.38 kg

DRUGS (2)
  1. BENADRYL ALLERGY ULTRATAB [Suspect]
     Indication: SLEEP DISORDER THERAPY
     Route: 048
     Dates: start: 20111210
  2. BENADRYL ALLERGY ULTRATAB [Suspect]
     Indication: SLEEP DISORDER THERAPY
     Route: 048

REACTIONS (2)
  - Drug dependence [Unknown]
  - Drug ineffective for unapproved indication [Unknown]
